FAERS Safety Report 8578263-0 (Version None)
Quarter: 2012Q3

REPORT INFORMATION
  Report Type: 
  Country: None (occurrence: None)
  Receive Date: 20120808
  Receipt Date: 20120731
  Transmission Date: 20120928
  Serious: Yes (Other)
  Sender: FDA-Public Use
  Company Number: US-BAYER-2012-034605

PATIENT
  Age: 32 Year
  Sex: Female
  Weight: 60.771 kg

DRUGS (12)
  1. TRIAMTERENE [Concomitant]
     Dosage: 37.5-25 MG
     Route: 048
     Dates: start: 20110505
  2. IBUPROFEN [Concomitant]
     Indication: HEADACHE
     Dosage: 200 TO 400 MG, UNK
  3. IBUPROFEN [Concomitant]
     Indication: BACK PAIN
  4. YAZ [Suspect]
     Indication: CONTRACEPTION
     Dosage: UNK
     Route: 048
     Dates: start: 20060101, end: 20110101
  5. YASMIN [Suspect]
     Indication: CONTRACEPTION
     Dosage: UNK
     Route: 048
     Dates: start: 20060101, end: 20110101
  6. DROSPIRENONE AND ETHINYL ESTRADIOL [Suspect]
     Indication: CONTRACEPTION
     Dosage: UNK
     Route: 048
     Dates: start: 20060101, end: 20110101
  7. AZITHROMYCIN [Concomitant]
     Dosage: 250 MG, UNK
     Route: 048
  8. PROMETHAZINE [Concomitant]
     Dosage: 25 MG, UNK
     Route: 048
  9. HYDROCODONE BITARTRATE + ACETAMINOPHEN [Concomitant]
     Dosage: 5-500MG
     Route: 048
  10. CYMBALTA [Concomitant]
     Indication: BACK PAIN
     Dosage: 30 MG, UNK
     Route: 048
  11. BYSTOLIC [Concomitant]
     Dosage: 5 MG, UNK
     Route: 048
     Dates: start: 20110505
  12. ANTI-INFLAMMATORIES [Concomitant]

REACTIONS (5)
  - MENTAL DISORDER [None]
  - DEEP VEIN THROMBOSIS [None]
  - FEAR [None]
  - INJURY [None]
  - PAIN [None]
